FAERS Safety Report 14256923 (Version 1)
Quarter: 2017Q4

REPORT INFORMATION
  Report Type: Spontaneous
  Country: US (occurrence: US)
  Receive Date: 20171206
  Receipt Date: 20171206
  Transmission Date: 20180321
  Serious: No
  Sender: FDA-Public Use
  Company Number: US-009507513-1407USA009854

PATIENT

DRUGS (4)
  1. PNEUMOVAX 23 [Suspect]
     Active Substance: PNEUMOCOCCAL VACCINE, POLYVALENT 23
     Indication: PROPHYLAXIS
  2. PNEUMOVAX 23 [Suspect]
     Active Substance: PNEUMOCOCCAL VACCINE, POLYVALENT 23
  3. STERILE DILUENT [Suspect]
     Active Substance: WATER
     Dosage: UNK
  4. STERILE DILUENT [Suspect]
     Active Substance: WATER

REACTIONS (2)
  - Product storage error [Unknown]
  - No adverse event [Unknown]
